FAERS Safety Report 6417999-4 (Version None)
Quarter: 2009Q4

REPORT INFORMATION
  Report Type: 
  Country: None (occurrence: None)
  Receive Date: 20091028
  Receipt Date: 20091026
  Transmission Date: 20100525
  Serious: Yes (Hospitalization, Other)
  Sender: FDA-Public Use
  Company Number: GB-BRISTOL-MYERS SQUIBB COMPANY-14820146

PATIENT
  Age: 73 Year
  Sex: Female
  Weight: 87 kg

DRUGS (8)
  1. DASATINIB [Suspect]
     Indication: CHRONIC MYELOID LEUKAEMIA
     Dosage: INITIALLY INTERRUPTED OCT09 THE DC'D
     Route: 048
     Dates: start: 20090808, end: 20091013
  2. FLUOXETINE [Concomitant]
     Indication: DEPRESSION
     Dosage: DOSE- T
     Route: 048
     Dates: start: 20090320, end: 20091013
  3. SODIUM BICARBONATE IN PLASTIC CONTAINER [Concomitant]
     Indication: ELECTROLYTE IMBALANCE
     Route: 048
     Dates: start: 20090701
  4. LIPITOR [Concomitant]
     Route: 048
     Dates: start: 20090707
  5. BISOPROLOL [Concomitant]
     Indication: HYPERTENSION
     Route: 048
     Dates: end: 20091013
  6. CANDESARTAN CILEXETIL [Concomitant]
     Indication: HYPERTENSION
     Dates: start: 20090719, end: 20091013
  7. FUROSEMIDE [Concomitant]
     Dates: start: 20090722
  8. WARFARIN SODIUM [Concomitant]
     Dates: start: 20090902

REACTIONS (2)
  - CARDIAC FAILURE CONGESTIVE [None]
  - PULMONARY EMBOLISM [None]
